FAERS Safety Report 7309381-2 (Version None)
Quarter: 2011Q1

REPORT INFORMATION
  Report Type: 
  Country: None (occurrence: None)
  Receive Date: 20110223
  Receipt Date: 20110214
  Transmission Date: 20110831
  Serious: Yes (Hospitalization)
  Sender: FDA-Public Use
  Company Number: FR-TEVA-267843ISR

PATIENT
  Age: 34 Year
  Sex: Male

DRUGS (8)
  1. COLCHICINE [Interacting]
     Dates: end: 20091028
  2. COLCHICINE [Interacting]
  3. CICLOSPORIN [Interacting]
  4. COLCHICINE [Interacting]
     Indication: GOUT
     Dates: start: 20091020
  5. HYDROCORTISONE [Concomitant]
  6. AZITHROMYCIN [Suspect]
     Indication: BRONCHIOLITIS
  7. PRAVASTATIN [Interacting]
     Indication: CORONARY ARTERY DISEASE
  8. EVEROLIMUS [Concomitant]

REACTIONS (6)
  - PULMONARY OEDEMA [None]
  - RHABDOMYOLYSIS [None]
  - CARDIAC FAILURE [None]
  - DRUG INTERACTION [None]
  - RENAL FAILURE [None]
  - CYTOLYTIC HEPATITIS [None]
